FAERS Safety Report 9547762 (Version 1)
Quarter: 2013Q2

REPORT INFORMATION
  Report Type: Spontaneous
  Country: US (occurrence: None)
  Receive Date: 20130628
  Receipt Date: 20130628
  Transmission Date: 20140414
  Serious: No
  Sender: FDA-Public Use
  Company Number: 130150

PATIENT
  Sex: Male
  Weight: 68.49 kg

DRUGS (1)
  1. VANCOMYCIN HYDROCHLORIDE [Suspect]
     Indication: OSTEOMYELITIS
     Route: 042
     Dates: start: 200812, end: 200812

REACTIONS (2)
  - Red man syndrome [None]
  - Pruritus [None]
